FAERS Safety Report 4992830-2 (Version None)
Quarter: 2006Q1

REPORT INFORMATION
  Report Type: 
  Country: None (occurrence: None)
  Receive Date: 20060315
  Receipt Date: 20051205
  Transmission Date: 20060701
  Serious: No
  Sender: FDA-Public Use
  Company Number: 2005RL000199

PATIENT
  Age: 64 Year
  Sex: Male
  Weight: 68.9467 kg

DRUGS (3)
  1. OMACOR [Suspect]
     Indication: BLOOD TRIGLYCERIDES INCREASED
     Dosage: 2 GM;BID;PO
     Route: 048
     Dates: start: 20051101
  2. LIPITOR [Concomitant]
  3. TYLENOL (GELTAB) [Concomitant]

REACTIONS (2)
  - ANALGESIC EFFECT [None]
  - THERAPEUTIC RESPONSE UNEXPECTED [None]
